FAERS Safety Report 18753029 (Version 1)
Quarter: 2021Q1

REPORT INFORMATION
  Report Type: Spontaneous
  Country: HR (occurrence: HR)
  Receive Date: 20210118
  Receipt Date: 20210118
  Transmission Date: 20210419
  Serious: Yes (Other)
  Sender: FDA-Public Use
  Company Number: HR-PFIZER INC-2021020176

PATIENT
  Sex: Female
  Weight: 100 kg

DRUGS (7)
  1. PERINDOPRIL [Suspect]
     Active Substance: PERINDOPRIL
     Dosage: UNK
  2. NEBIVOLOL. [Suspect]
     Active Substance: NEBIVOLOL
     Dosage: 2.5 MG
  3. ASPIRIN [ACETYLSALICYLIC ACID] [Suspect]
     Active Substance: ASPIRIN
     Dosage: UNK
  4. METFORMIN [Suspect]
     Active Substance: METFORMIN HYDROCHLORIDE
     Dosage: UNK
  5. ATORVASTATIN CALCIUM. [Suspect]
     Active Substance: ATORVASTATIN CALCIUM
     Dosage: 20 MG
  6. GLICLAZIDE [Suspect]
     Active Substance: GLICLAZIDE
     Dosage: 60 MG
  7. MOXONIDINE [Suspect]
     Active Substance: MOXONIDINE
     Dosage: 0.2 MG

REACTIONS (13)
  - Hyperhidrosis [Unknown]
  - Nausea [Unknown]
  - Exercise tolerance decreased [Recovering/Resolving]
  - Peripheral arterial occlusive disease [Unknown]
  - Coronary artery disease [Recovering/Resolving]
  - Coronary artery occlusion [Unknown]
  - Vomiting [Unknown]
  - Peripheral artery stenosis [Unknown]
  - Myocardial ischaemia [Unknown]
  - Chest pain [Unknown]
  - Intermittent claudication [Unknown]
  - Angina pectoris [Recovering/Resolving]
  - Peripheral ischaemia [Unknown]

NARRATIVE: CASE EVENT DATE: 201311
